FAERS Safety Report 9704631 (Version 1)
Quarter: 2013Q4

REPORT INFORMATION
  Report Type: Spontaneous
  Country: US (occurrence: US)
  Receive Date: 20131122
  Receipt Date: 20131122
  Transmission Date: 20140711
  Serious: Yes (Other)
  Sender: FDA-Public Use
  Company Number: GXBR2013US001999

PATIENT
  Sex: Female

DRUGS (1)
  1. OMNITROPE [Suspect]
     Indication: TURNER^S SYNDROME
     Dosage: UNK MG, UNK
     Dates: start: 2012

REACTIONS (2)
  - Renal hypertrophy [Unknown]
  - Hypertension [Unknown]
